FAERS Safety Report 6827722-7 (Version None)
Quarter: 2010Q3

REPORT INFORMATION
  Report Type: 
  Country: None (occurrence: None)
  Receive Date: 20100709
  Receipt Date: 20070126
  Transmission Date: 20110219
  Serious: No
  Sender: FDA-Public Use
  Company Number: US-PFIZER INC-2007008310

PATIENT
  Sex: Female
  Weight: 90.26 kg

DRUGS (2)
  1. CHANTIX [Suspect]
     Indication: SMOKING CESSATION THERAPY
     Dates: start: 20070108
  2. MONTELUKAST SODIUM [Concomitant]
     Indication: MULTIPLE ALLERGIES

REACTIONS (4)
  - GASTROENTERITIS VIRAL [None]
  - HEADACHE [None]
  - PYREXIA [None]
  - VOMITING [None]
